APPROVED DRUG PRODUCT: EQUETRO
Active Ingredient: CARBAMAZEPINE
Strength: 300MG
Dosage Form/Route: CAPSULE, EXTENDED RELEASE;ORAL
Application: N021710 | Product #003
Applicant: VALIDUS PHARMACEUTICALS LLC
Approved: Dec 10, 2004 | RLD: Yes | RS: Yes | Type: RX